FAERS Safety Report 7761259-6 (Version None)
Quarter: 2011Q3

REPORT INFORMATION
  Report Type: 
  Country: None (occurrence: None)
  Receive Date: 20110920
  Receipt Date: 20110907
  Transmission Date: 20111222
  Serious: Yes (Other)
  Sender: FDA-Public Use
  Company Number: JP-RANBAXY-2011RR-46640

PATIENT
  Age: 37 Year
  Sex: Male

DRUGS (4)
  1. ELETRIPTAN [Suspect]
     Indication: MIGRAINE
     Route: 065
  2. KAMPO MEDICINE KAKKON-TO-KA-SENKYU-SHIN'I [Concomitant]
     Indication: SINUSITIS
     Dosage: 7.5 G/DAY
     Route: 065
  3. RIZATRIPTAN [Suspect]
     Indication: MIGRAINE
     Route: 065
  4. SUMATRIPTAN SUCCINATE [Suspect]
     Indication: MIGRAINE
     Route: 065

REACTIONS (5)
  - HERBAL INTERACTION [None]
  - MUSCULOSKELETAL STIFFNESS [None]
  - NAUSEA [None]
  - CHEST DISCOMFORT [None]
  - ABDOMINAL DISCOMFORT [None]
